FAERS Safety Report 9493303 (Version 2)
Quarter: 2013Q3

REPORT INFORMATION
  Report Type: Report from Study
  Country: IT (occurrence: IT)
  Receive Date: 20130902
  Receipt Date: 20130902
  Transmission Date: 20140515
  Serious: Yes (Death, Hospitalization)
  Sender: FDA-Public Use
  Company Number: PHHO2011IT05271

PATIENT
  Age: 76 Year
  Sex: Male
  Weight: 82 kg

DRUGS (2)
  1. ALISKIREN [Suspect]
     Indication: CARDIOVASCULAR DISORDER
     Route: 048
     Dates: start: 20081127, end: 20101123
  2. IRBESARTAN [Concomitant]
     Indication: HYPERTENSION

REACTIONS (2)
  - Death [Fatal]
  - Hyperkalaemia [Not Recovered/Not Resolved]
